FAERS Safety Report 7331238 (Version 5)
Quarter: 2013Q1

REPORT INFORMATION
  Report Type: Spontaneous
  Country: US (occurrence: US)
  Receive Date: 20100325
  Receipt Date: 20130212
  Transmission Date: 20140127
  Serious: No
  Sender: FDA-Public Use
  Company Number: US-BIOGENIDEC-2009BI026852

PATIENT
  Age: 53 Year
  Sex: Female

DRUGS (1)
  1. TYSABRI [Suspect]
     Indication: MULTIPLE SCLEROSIS
     Route: 042
     Dates: start: 20090624

REACTIONS (13)
  - Emotional disorder [Recovered/Resolved]
  - Crying [Recovered/Resolved]
  - Rash papular [Recovered/Resolved]
  - General symptom [Recovered/Resolved]
  - Anxiety [Recovered/Resolved]
  - Feeling abnormal [Recovered/Resolved]
  - Arthropathy [Not Recovered/Not Resolved]
  - Chest discomfort [Recovered/Resolved]
  - Hot flush [Recovered/Resolved]
  - Sinusitis [Not Recovered/Not Resolved]
  - Pruritus [Recovered/Resolved]
  - Fatigue [Not Recovered/Not Resolved]
  - Headache [Recovered/Resolved]
